FAERS Safety Report 5375391-8 (Version None)
Quarter: 2007Q2

REPORT INFORMATION
  Report Type: 
  Country: None (occurrence: None)
  Receive Date: 20070629
  Receipt Date: 20070620
  Transmission Date: 20071010
  Serious: Yes (Hospitalization)
  Sender: FDA-Public Use
  Company Number: FR-PFIZER INC-2007051193

PATIENT
  Age: 47 Year
  Sex: Male

DRUGS (4)
  1. SOLU-MEDROL [Suspect]
     Dosage: TEXT:40 MG/2 ML
     Route: 042
     Dates: start: 20070419, end: 20070419
  2. DEXCHLORPHENIRAMINE [Suspect]
     Route: 042
     Dates: start: 20070419, end: 20070419
  3. CETUXIMAB [Suspect]
     Route: 042
     Dates: start: 20070419, end: 20070419
  4. GRANISETRON [Suspect]
     Dosage: TEXT:3 MG/3 ML
     Route: 042
     Dates: start: 20070419, end: 20070419

REACTIONS (2)
  - CHILLS [None]
  - TACHYCARDIA [None]
